FAERS Safety Report 10623447 (Version 2)
Quarter: 2014Q4

REPORT INFORMATION
  Report Type: Spontaneous
  Country: AT (occurrence: AT)
  Receive Date: 20141203
  Receipt Date: 20141203
  Transmission Date: 20150529
  Serious: Yes (Other)
  Sender: FDA-Public Use
  Company Number: AT-BRISTOL-MYERS SQUIBB COMPANY-21621610

PATIENT
  Age: 50 Year
  Sex: Male
  Weight: 165 kg

DRUGS (1)
  1. FORXIGA [Suspect]
     Active Substance: DAPAGLIFLOZIN
     Indication: TYPE 2 DIABETES MELLITUS
     Dosage: LAST DOSE ON 25-AUG-2014
     Dates: start: 20140729

REACTIONS (2)
  - Abdominal pain [Unknown]
  - Nocturia [Recovered/Resolved]

NARRATIVE: CASE EVENT DATE: 20140729
